FAERS Safety Report 25226498 (Version 1)
Quarter: 2025Q2

REPORT INFORMATION
  Report Type: Other
  Country: IN (occurrence: IN)
  Receive Date: 20250422
  Receipt Date: 20250422
  Transmission Date: 20250717
  Serious: Yes (Hospitalization)
  Sender: AIRGAS
  Company Number: IN-MLMSERVICE-20250402- PI466158-00253-1

PATIENT
  Age: 18 Year
  Sex: Male

DRUGS (1)
  1. OXYGEN [Suspect]
     Active Substance: OXYGEN
     Indication: Pneumocephalus

REACTIONS (1)
  - Hypercapnia [Recovering/Resolving]
